FAERS Safety Report 5938353-5 (Version None)
Quarter: 2008Q4

REPORT INFORMATION
  Report Type: 
  Country: None (occurrence: None)
  Receive Date: 20081103
  Receipt Date: 20081029
  Transmission Date: 20090506
  Serious: Yes (Hospitalization)
  Sender: FDA-Public Use
  Company Number: US-BRISTOL-MYERS SQUIBB COMPANY-14388615

PATIENT
  Age: 45 Year
  Sex: Female

DRUGS (4)
  1. CARBOPLATIN [Suspect]
     Indication: BREAST CANCER METASTATIC
     Dosage: HELD ON 14OCT08.
     Route: 042
  2. PACLITAXEL [Suspect]
     Indication: BREAST CANCER METASTATIC
     Dosage: HELD ON 14OCT08.
     Route: 042
  3. LAPATINIB [Suspect]
     Indication: BREAST CANCER METASTATIC
     Route: 048
     Dates: start: 20080915
  4. TRASTUZUMAB [Suspect]
     Indication: BREAST CANCER METASTATIC
     Dosage: HELD ON 14OCT08.
     Route: 042

REACTIONS (4)
  - BLOOD BILIRUBIN INCREASED [None]
  - RASH [None]
  - RENAL FAILURE [None]
  - URINARY TRACT INFECTION [None]
